FAERS Safety Report 6072581-6 (Version None)
Quarter: 2009Q1

REPORT INFORMATION
  Report Type: 
  Country: None (occurrence: None)
  Receive Date: 20090210
  Receipt Date: 20090128
  Transmission Date: 20090719
  Serious: Yes (Death)
  Sender: FDA-Public Use
  Company Number: US-WATSON-2009-00732

PATIENT
  Age: 52 Year
  Sex: Male

DRUGS (8)
  1. VERAPAMIL [Suspect]
     Indication: DRUG USE FOR UNKNOWN INDICATION
     Dosage: UNKNOWN
     Dates: end: 20070101
  2. TRIAMTERENE/HYDROCHLOROTHIAZIDE (UNKNOWN STRENGTH)WATSON LABORATORIES) [Suspect]
     Indication: DRUG USE FOR UNKNOWN INDICATION
  3. GLIPIZIDE (WATSON LABORATORIES) [Suspect]
     Indication: DRUG USE FOR UNKNOWN INDICATION
  4. FORTAMET [Suspect]
     Indication: DRUG USE FOR UNKNOWN INDICATION
  5. LITHIUM CARBONATE [Suspect]
  6. OLANZAPINE [Suspect]
  7. MEVACOR [Suspect]
  8. HYDROGEN PEROXIDE SOLUTION [Suspect]

REACTIONS (1)
  - DEATH [None]
